FAERS Safety Report 5799786-3 (Version None)
Quarter: 2008Q3

REPORT INFORMATION
  Report Type: 
  Country: None (occurrence: None)
  Receive Date: 20080703
  Receipt Date: 20080625
  Transmission Date: 20090109
  Serious: Yes (Hospitalization, Other)
  Sender: FDA-Public Use
  Company Number: US-TEVA-173440USA

PATIENT
  Sex: Male

DRUGS (1)
  1. METOPROLOL TARTRATE TABLETS USP 50MG + 100MG [Suspect]

REACTIONS (1)
  - CEREBROVASCULAR ACCIDENT [None]
